FAERS Safety Report 24809834 (Version 1)
Quarter: 2025Q1

REPORT INFORMATION
  Report Type: Spontaneous
  Country: ES (occurrence: ES)
  Receive Date: 20250106
  Receipt Date: 20250106
  Transmission Date: 20250409
  Serious: Yes (Other)
  Sender: ACCORD
  Company Number: ES-PFIZER INC-202400245804

PATIENT
  Age: 60 Year
  Sex: Female

DRUGS (4)
  1. TIGECYCLINE [Suspect]
     Active Substance: TIGECYCLINE
     Indication: Eye infection bacterial
     Dosage: 50 MG, 2X/DAY
  2. AMIKACIN [Concomitant]
     Active Substance: AMIKACIN
     Indication: Eye infection bacterial
  3. AZITHROMYCIN [Concomitant]
     Active Substance: AZITHROMYCIN
     Indication: Eye infection bacterial
  4. IMIPENEM [Concomitant]
     Active Substance: IMIPENEM
     Indication: Eye infection bacterial
     Dosage: 1 G, 3X/DAY

REACTIONS (2)
  - Hepatitis [Unknown]
  - Dyspepsia [Unknown]
